FAERS Safety Report 8984414 (Version 2)
Quarter: 2013Q2

REPORT INFORMATION
  Report Type: Spontaneous
  Country: FR (occurrence: None)
  Receive Date: 20121214
  Receipt Date: 20130520
  Transmission Date: 20140414
  Serious: Yes (Hospitalization)
  Sender: FDA-Public Use
  Company Number: INT_00167_2012

PATIENT
  Age: 0 Day
  Sex: Female

DRUGS (20)
  1. CEFTRIAXONE [Suspect]
     Indication: PRODUCT USED FOR UNKNOWN INDICATION
     Route: 064
     Dates: start: 20120304, end: 20120316
  2. KABIVEN [Suspect]
     Indication: PARENTERAL NUTRITION
     Dates: start: 20120304, end: 20120310
  3. PROPOFOL [Suspect]
     Indication: INDUCTION OF ANAESTHESIA
     Dosage: DF INTRAVENOUS (NOT OTHERWISE SPECIFIED)
     Route: 042
     Dates: start: 20120310, end: 20120310
  4. MIDAZOLAM [Suspect]
     Indication: PRODUCT USED FOR UNKNOWN INDICATION
  5. SUFENTANIL [Suspect]
     Indication: PRODUCT USED FOR UNKNOWN INDICATION
  6. TAZOCILLINE [Suspect]
     Indication: PRODUCT USED FOR UNKNOWN INDICATION
  7. CELESTAMINE [Suspect]
     Indication: PRODUCT USED FOR UNKNOWN INDICATION
  8. KETAMINE [Suspect]
     Indication: PRODUCT USED FOR UNKNOWN INDICATION
  9. PERFALGAN [Suspect]
     Indication: PRODUCT USED FOR UNKNOWN INDICATION
  10. TRACTOCILE [Suspect]
     Indication: PRODUCT USED FOR UNKNOWN INDICATION
  11. ZOPHREN [Suspect]
     Indication: PRODUCT USED FOR UNKNOWN INDICATION
  12. INEXIUM [Suspect]
     Indication: PRODUCT USED FOR UNKNOWN INDICATION
  13. LOVENOX [Suspect]
     Indication: PRODUCT USED FOR UNKNOWN INDICATION
  14. OLICLINOMEL [Suspect]
     Indication: PRODUCT USED FOR UNKNOWN INDICATION
  15. AMOXICILLIN (AMOXICILLIN) [Suspect]
     Indication: PRODUCT USED FOR UNKNOWN INDICATION
  16. FUMAFER [Suspect]
     Indication: PRODUCT USED FOR UNKNOWN INDICATION
  17. TAMIFLU [Suspect]
     Indication: PRODUCT USED FOR UNKNOWN INDICATION
  18. RULID [Suspect]
     Indication: PRODUCT USED FOR UNKNOWN INDICATION
  19. TAGAMET [Concomitant]
  20. EMLA [Concomitant]

REACTIONS (4)
  - Foetal growth restriction [None]
  - Cerebral haemorrhage [None]
  - Caesarean section [None]
  - Exposure during pregnancy [None]
